FAERS Safety Report 5661992-6 (Version None)
Quarter: 2008Q1

REPORT INFORMATION
  Report Type: 
  Country: None (occurrence: None)
  Receive Date: 20080201
  Receipt Date: 20071004
  Transmission Date: 20080703
  Serious: Yes (Other)
  Sender: FDA-Public Use
  Company Number: 523172

PATIENT
  Age: 50 Year
  Sex: Male
  Weight: 88 kg

DRUGS (15)
  1. COPEGUS [Suspect]
     Indication: HEPATITIS C
     Dosage: 600 MG 2 PER DAY
     Dates: start: 20060708
  2. INFERGEN [Suspect]
     Indication: HEPATITIS C
     Dosage: 15 MCG 1 PER DAY SUBCUTANEOUS
     Route: 058
     Dates: start: 20060708, end: 20070828
  3. ZYRTEC-D 12 HOUR [Concomitant]
  4. ASMANEX TWISTHALER [Concomitant]
  5. AFRIN (*OXYMETAZOLINE HYDROCHLORIDE/*PSEUDOPHEDRINE HYDROCHLORIDE) [Concomitant]
  6. ASPIRIN [Concomitant]
  7. ALBUTEROL [Concomitant]
  8. CENTRUM (MINERALS NOS/MULTIVITAMIN NOS) [Concomitant]
  9. FLEXERIL [Concomitant]
  10. NAPROXEN [Concomitant]
  11. VITAMIN B12 [Concomitant]
  12. PALGIC (CARBINOXAMINE MALEATE) [Concomitant]
  13. IMMUNOGLOBULIN HUMAN ANTI-TETANUS (TETANUS IMMUNE GLOBULIN) [Concomitant]
  14. WELLBUTRIN [Concomitant]
     Dates: end: 20070302
  15. TRAZODONE (TRAZODONE HYDROCHLORIDE) [Concomitant]
     Dates: end: 20070423

REACTIONS (33)
  - ANOREXIA [None]
  - ANXIETY [None]
  - ASTHMA [None]
  - BLOOD GLUCOSE INCREASED [None]
  - CONSTIPATION [None]
  - COUGH [None]
  - DEPRESSION [None]
  - DYSPNOEA [None]
  - DYSPNOEA AT REST [None]
  - EYE DISCHARGE [None]
  - FATIGUE [None]
  - HAEMATOCRIT DECREASED [None]
  - HAEMOGLOBIN DECREASED [None]
  - HEADACHE [None]
  - HYPOTHYROIDISM [None]
  - INJECTION SITE REACTION [None]
  - LYMPHOPENIA [None]
  - MEAN CELL HAEMOGLOBIN INCREASED [None]
  - MYOPIA [None]
  - NEUTROPENIA [None]
  - PRODUCTIVE COUGH [None]
  - RED BLOOD CELL COUNT DECREASED [None]
  - RED CELL DISTRIBUTION WIDTH INCREASED [None]
  - SEDATION [None]
  - SELF-INJURIOUS IDEATION [None]
  - SLEEP DISORDER [None]
  - TOOTH EXTRACTION [None]
  - TREMOR [None]
  - VIRAL LOAD [None]
  - VIRAL LOAD INCREASED [None]
  - VISION BLURRED [None]
  - WEIGHT DECREASED [None]
  - WHEEZING [None]
